FAERS Safety Report 9438736 (Version 3)
Quarter: 2013Q4

REPORT INFORMATION
  Report Type: Report from Study
  Country: DE (occurrence: DE)
  Receive Date: 20130802
  Receipt Date: 20131209
  Transmission Date: 20140711
  Serious: Yes (Death, Other)
  Sender: FDA-Public Use
  Company Number: DE-ROCHE-1254870

PATIENT
  Sex: 0

DRUGS (4)
  1. RITUXIMAB [Suspect]
     Indication: NON-HODGKIN^S LYMPHOMA
     Route: 065
  2. ETOPOSIDE [Suspect]
     Indication: NON-HODGKIN^S LYMPHOMA
     Route: 042
  3. CYTARABINE [Suspect]
     Indication: NON-HODGKIN^S LYMPHOMA
     Route: 042
  4. MELPHALAN [Suspect]
     Indication: NON-HODGKIN^S LYMPHOMA
     Route: 042

REACTIONS (7)
  - Sepsis [Fatal]
  - Multi-organ failure [Fatal]
  - Mucosal inflammation [Unknown]
  - Febrile neutropenia [Unknown]
  - Pneumonia [Unknown]
  - Leukopenia [Unknown]
  - Thrombocytopenia [Unknown]
